FAERS Safety Report 25311062 (Version 1)
Quarter: 2025Q2

REPORT INFORMATION
  Report Type: Spontaneous
  Country: FR (occurrence: FR)
  Receive Date: 20250514
  Receipt Date: 20250514
  Transmission Date: 20250717
  Serious: Yes (Other)
  Sender: SERVIER
  Company Number: FR-SERVIER-S25006309

PATIENT

DRUGS (7)
  1. IVOSIDENIB [Suspect]
     Active Substance: IVOSIDENIB
     Indication: Glioma
     Dosage: 250 MG, BID
     Route: 048
     Dates: start: 20240215
  2. BISOPROLOL [Concomitant]
     Active Substance: BISOPROLOL
     Indication: Cardiomyopathy
     Route: 065
  3. XARELTO [Concomitant]
     Active Substance: RIVAROXABAN
     Indication: Cardiomyopathy
     Route: 065
  4. LISINOPRIL [Concomitant]
     Active Substance: LISINOPRIL
     Indication: Hypertension
     Route: 065
  5. VENLAFAXINE [Concomitant]
     Active Substance: VENLAFAXINE HYDROCHLORIDE
     Indication: Depression
     Route: 065
  6. VALPROATE SODIUM [Concomitant]
     Active Substance: VALPROATE SODIUM
     Indication: Oligodendroglioma
     Route: 065
  7. LEVETIRACETAM [Concomitant]
     Active Substance: LEVETIRACETAM
     Indication: Oligodendroglioma
     Dosage: 1250 MG, BID
     Route: 065

REACTIONS (1)
  - Cardiac disorder [Unknown]
